FAERS Safety Report 6163238-1 (Version None)
Quarter: 2009Q2

REPORT INFORMATION
  Report Type: 
  Country: None (occurrence: None)
  Receive Date: 20090422
  Receipt Date: 20090420
  Transmission Date: 20091009
  Serious: Yes (Death, Hospitalization)
  Sender: FDA-Public Use
  Company Number: DE-BAYER-200810195GPV

PATIENT
  Age: 63 Year
  Sex: Male
  Weight: 68 kg

DRUGS (9)
  1. ALEMTUZUMAB [Suspect]
     Indication: CHRONIC LYMPHOCYTIC LEUKAEMIA RECURRENT
     Dosage: DOSE ESCALATION AND CYCLE 1
     Route: 058
     Dates: start: 20071127, end: 20071201
  2. FLUDARABINE [Suspect]
     Indication: CHRONIC LYMPHOCYTIC LEUKAEMIA RECURRENT
     Dosage: CYCLE 1
     Route: 042
     Dates: start: 20071127, end: 20071201
  3. CYCLOPHOSPHAMIDE [Suspect]
     Indication: CHRONIC LYMPHOCYTIC LEUKAEMIA RECURRENT
     Dosage: CYCLE 1
     Route: 042
     Dates: start: 20071129, end: 20071201
  4. TAMSULOSIN HCL [Concomitant]
     Route: 048
     Dates: start: 20060101
  5. TRIMIPRAMINMALEAT [Concomitant]
     Route: 048
     Dates: start: 20060201
  6. TIOTROPIUMBROMID [Concomitant]
     Route: 048
     Dates: start: 20060814
  7. FORMOTEROLHEMIFUMARAT [Concomitant]
     Route: 048
     Dates: start: 20060214
  8. CIPROFLAXACIN [Concomitant]
     Route: 048
     Dates: start: 20071123, end: 20071220
  9. PREDNISOLONE [Concomitant]
     Route: 048
     Dates: start: 20071128

REACTIONS (10)
  - C-REACTIVE PROTEIN INCREASED [None]
  - CHRONIC LYMPHOCYTIC LEUKAEMIA [None]
  - CHRONIC OBSTRUCTIVE PULMONARY DISEASE [None]
  - DYSPNOEA [None]
  - GENERAL PHYSICAL HEALTH DETERIORATION [None]
  - LEUKOPENIA [None]
  - NEUTROPENIA [None]
  - PAIN [None]
  - PNEUMONIA [None]
  - PROTEINURIA [None]
